FAERS Safety Report 17910762 (Version 2)
Quarter: 2020Q2

REPORT INFORMATION
  Report Type: Spontaneous
  Country: GB (occurrence: GB)
  Receive Date: 20200618
  Receipt Date: 20200626
  Transmission Date: 20200714
  Serious: Yes (Hospitalization, Other)
  Sender: FDA-Public Use
  Company Number: GB-AUROBINDO-AUR-APL-2010-01341

PATIENT
  Age: 2 Month
  Sex: Male

DRUGS (3)
  1. AMOXICILLIN. [Suspect]
     Active Substance: AMOXICILLIN
     Indication: MENINGITIS VIRAL
     Dosage: UNK
     Route: 065
     Dates: start: 2010
  2. CEFTRIAXONE. [Suspect]
     Active Substance: CEFTRIAXONE
     Indication: MENINGITIS VIRAL
     Dosage: UNK UNK,UNK,,UNKNOWN
     Route: 065
     Dates: start: 2010
  3. PREVNAR 13 [Suspect]
     Active Substance: PNEUMOCOCCAL 13-VALENT CONJUGATE VACCINE
     Indication: IMMUNISATION
     Dosage: 1 DOSAGE FORM, TOTAL (SINGLE DOSE)
     Route: 065
     Dates: start: 20100416, end: 20100416

REACTIONS (6)
  - Haematochezia [Recovering/Resolving]
  - Colitis [Unknown]
  - Condition aggravated [Unknown]
  - Diarrhoea [Unknown]
  - Mucous stools [Unknown]
  - Frequent bowel movements [Unknown]

NARRATIVE: CASE EVENT DATE: 20100416
